FAERS Safety Report 5812893-1 (Version None)
Quarter: 2008Q3

REPORT INFORMATION
  Report Type: 
  Country: None (occurrence: None)
  Receive Date: 20080717
  Receipt Date: 20070620
  Transmission Date: 20090109
  Serious: No
  Sender: FDA-Public Use
  Company Number: A0658145A

PATIENT
  Age: 53 Year
  Sex: Female

DRUGS (1)
  1. NICORETTE (MINT) [Suspect]
     Dates: start: 20070616, end: 20070618

REACTIONS (2)
  - HEADACHE [None]
  - HEART RATE INCREASED [None]
